FAERS Safety Report 7482776-2 (Version None)
Quarter: 2011Q2

REPORT INFORMATION
  Report Type: 
  Country: None (occurrence: None)
  Receive Date: 20110516
  Receipt Date: 20110504
  Transmission Date: 20111010
  Serious: Yes (Other)
  Sender: FDA-Public Use
  Company Number: JP-PFIZER INC-2010132155

PATIENT
  Sex: Female

DRUGS (5)
  1. ARTANE [Suspect]
     Indication: PORENCEPHALY
     Dosage: 2 MG, 1X/DAY
     Route: 048
     Dates: start: 19711201
  2. LATANOPROST [Concomitant]
     Dosage: UNK
  3. XALATAN [Suspect]
     Indication: GLAUCOMA
     Dosage: UNK
     Route: 047
  4. HYDANTOL [Concomitant]
     Dosage: UNK
  5. ARTANE [Suspect]
     Dosage: 1 MG, 1X/DAY

REACTIONS (3)
  - GLAUCOMA [None]
  - THIRST [None]
  - ASTHENOPIA [None]
